FAERS Safety Report 9122314 (Version 1)
Quarter: 2013Q1

REPORT INFORMATION
  Report Type: Spontaneous
  Country: FR (occurrence: FR)
  Receive Date: 20130227
  Receipt Date: 20130227
  Transmission Date: 20140127
  Serious: Yes (Death, Hospitalization)
  Sender: FDA-Public Use
  Company Number: FR-JNJFOC-20130213920

PATIENT
  Age: 23 Year
  Sex: Male

DRUGS (4)
  1. INFLIXIMAB, RECOMBINANT [Suspect]
     Indication: CROHN^S DISEASE
     Route: 042
     Dates: start: 2001, end: 2005
  2. HUMIRA [Suspect]
     Indication: CROHN^S DISEASE
     Route: 042
     Dates: start: 200503, end: 201004
  3. PURINETHOL [Suspect]
     Indication: CROHN^S DISEASE
     Dates: start: 2005, end: 201004
  4. IMUREL [Suspect]
     Indication: CROHN^S DISEASE
     Dates: start: 2000, end: 2004

REACTIONS (2)
  - Malignant melanoma [Fatal]
  - Metastasis [Fatal]
